FAERS Safety Report 6136947-8 (Version None)
Quarter: 2009Q1

REPORT INFORMATION
  Report Type: 
  Country: None (occurrence: None)
  Receive Date: 20090330
  Receipt Date: 20090318
  Transmission Date: 20090719
  Serious: Yes (Hospitalization, Other)
  Sender: FDA-Public Use
  Company Number: US-ELI_LILLY_AND_COMPANY-US200903000362

PATIENT
  Sex: Female

DRUGS (4)
  1. FORTEO [Suspect]
     Dosage: UNK, UNK
     Dates: start: 20090205
  2. LEVOXYL [Concomitant]
     Dosage: 0.05 MG, UNK
  3. DILANTIN [Concomitant]
  4. CALCIUM W/VITAMIN D NOS [Concomitant]

REACTIONS (2)
  - FALL [None]
  - HUMERUS FRACTURE [None]
